FAERS Safety Report 12323579 (Version 1)
Quarter: 2016Q2

REPORT INFORMATION
  Report Type: Spontaneous
  Country: US (occurrence: US)
  Receive Date: 20160502
  Receipt Date: 20160502
  Transmission Date: 20160815
  Serious: No
  Sender: FDA-Public Use
  Company Number: US-TARO-2015TAR00380

PATIENT
  Age: 95 Year
  Sex: Female

DRUGS (1)
  1. AMIODARONE HCL TABLET 100 MG [Suspect]
     Active Substance: AMIODARONE HYDROCHLORIDE
     Dosage: 100 MG, 3X/WEEK

REACTIONS (2)
  - Failure to thrive [Not Recovered/Not Resolved]
  - Depressed level of consciousness [Unknown]
